FAERS Safety Report 23161739 (Version 2)
Quarter: 2024Q1

REPORT INFORMATION
  Report Type: Report from Study
  Country: US (occurrence: US)
  Receive Date: 20231108
  Receipt Date: 20240104
  Transmission Date: 20240410
  Serious: Yes (Other)
  Sender: FDA-Public Use
  Company Number: US-ALXN-A202311585AA

PATIENT
  Sex: Female

DRUGS (3)
  1. ULTOMIRIS [Suspect]
     Active Substance: RAVULIZUMAB-CWVZ
     Indication: Myasthenia gravis
     Dosage: UNK, EVERY 8 WEEKS
     Route: 065
  2. ULTOMIRIS [Suspect]
     Active Substance: RAVULIZUMAB-CWVZ
     Dosage: UNK, EVERY 4 WEEKS
     Route: 065
  3. CELLCEPT [Concomitant]
     Active Substance: MYCOPHENOLATE MOFETIL
     Indication: Product used for unknown indication
     Dosage: 50 MG, BID
     Route: 065

REACTIONS (13)
  - Diplegia [Unknown]
  - Autoimmune thyroiditis [Unknown]
  - Dysphagia [Unknown]
  - Speech disorder [Unknown]
  - Muscle twitching [Recovered/Resolved]
  - Diplopia [Recovered/Resolved]
  - Memory impairment [Unknown]
  - Movement disorder [Unknown]
  - Symptom recurrence [Unknown]
  - Pruritus [Recovering/Resolving]
  - Fatigue [Unknown]
  - Asthenia [Not Recovered/Not Resolved]
  - Myalgia [Unknown]
